FAERS Safety Report 5713406-5 (Version None)
Quarter: 2008Q2

REPORT INFORMATION
  Report Type: 
  Country: None (occurrence: None)
  Receive Date: 20080422
  Receipt Date: 20080409
  Transmission Date: 20081010
  Serious: Yes (Hospitalization)
  Sender: FDA-Public Use
  Company Number: US-GENENTECH-255191

PATIENT
  Sex: Female
  Weight: 99.773 kg

DRUGS (6)
  1. BEVACIZUMAB [Suspect]
     Indication: TONSIL CANCER
     Dosage: 15 MG/KG, UNK
     Dates: start: 20071022
  2. ERLOTINIB [Suspect]
     Indication: TONSIL CANCER
     Dosage: 150 MG, QD
     Route: 048
     Dates: start: 20071210
  3. PACLITAXEL [Suspect]
     Indication: TONSIL CANCER
     Dosage: 50 MG/M2, UNK
     Dates: start: 20071022
  4. RADIATION [Suspect]
     Indication: TONSIL CANCER
     Dosage: 1.8 GY, UNK
     Dates: start: 20071210
  5. DILAUDID [Concomitant]
     Indication: PAIN
     Route: 042
  6. TPN [Concomitant]
     Indication: DRUG USE FOR UNKNOWN INDICATION

REACTIONS (3)
  - DEVICE RELATED INFECTION [None]
  - OESOPHAGITIS [None]
  - VOMITING [None]
